FAERS Safety Report 4783148-1 (Version None)
Quarter: 2005Q3

REPORT INFORMATION
  Report Type: 
  Country: None (occurrence: None)
  Receive Date: 20050914
  Receipt Date: 20050617
  Transmission Date: 20060218
  Serious: Yes (Death)
  Sender: FDA-Public Use
  Company Number: 163-20785-05060278

PATIENT
  Age: 74 Year
  Sex: Female

DRUGS (2)
  1. THALOMID [Suspect]
     Indication: BONE NEOPLASM MALIGNANT
     Dosage: 200 MG, DAILY, ORAL
     Route: 048
     Dates: start: 20050602, end: 20050601
  2. THALOMID [Suspect]
     Indication: METASTASIS
     Dosage: 200 MG, DAILY, ORAL
     Route: 048
     Dates: start: 20050602, end: 20050601

REACTIONS (1)
  - DISEASE PROGRESSION [None]
